FAERS Safety Report 11249869 (Version 1)
Quarter: 2015Q3

REPORT INFORMATION
  Report Type: Spontaneous
  Country: US (occurrence: US)
  Receive Date: 20150708
  Receipt Date: 20150708
  Transmission Date: 20151125
  Serious: No
  Sender: FDA-Public Use
  Company Number: US-ELI_LILLY_AND_COMPANY-US200905000916

PATIENT
  Sex: Female

DRUGS (2)
  1. CISPLATIN. [Concomitant]
     Active Substance: CISPLATIN
     Indication: LUNG NEOPLASM MALIGNANT
  2. GEMZAR [Suspect]
     Active Substance: GEMCITABINE HYDROCHLORIDE
     Indication: LUNG NEOPLASM MALIGNANT
     Dosage: UNK, UNK

REACTIONS (7)
  - Weight decreased [Unknown]
  - Nausea [Unknown]
  - Respiratory tract infection [Unknown]
  - Blood count abnormal [Unknown]
  - Vomiting [Unknown]
  - Haematuria [Unknown]
  - Platelet count decreased [Unknown]
